FAERS Safety Report 15660750 (Version 2)
Quarter: 2018Q4

REPORT INFORMATION
  Report Type: Spontaneous
  Country: PT (occurrence: PT)
  Receive Date: 20181127
  Receipt Date: 20181203
  Transmission Date: 20190205
  Serious: Yes (Other)
  Sender: FDA-Public Use
  Company Number: PT-PFIZER INC-2018486994

PATIENT
  Age: 75 Year
  Sex: Male

DRUGS (2)
  1. SODIUM CROMOGLICATE [Suspect]
     Active Substance: CROMOLYN SODIUM
     Indication: SYSTEMIC MASTOCYTOSIS
     Dosage: UNK
     Route: 065
  2. CALCIUM [Suspect]
     Active Substance: CALCIUM
     Indication: SYSTEMIC MASTOCYTOSIS
     Dosage: UNK
     Route: 065

REACTIONS (3)
  - Thrombocytosis [Recovering/Resolving]
  - Concomitant disease aggravated [Recovering/Resolving]
  - Anaemia [Recovering/Resolving]
